FAERS Safety Report 15345356 (Version 1)
Quarter: 2018Q3

REPORT INFORMATION
  Report Type: Spontaneous
  Country: JP (occurrence: JP)
  Receive Date: 20180903
  Receipt Date: 20180903
  Transmission Date: 20181010
  Serious: Yes (Other)
  Sender: FDA-Public Use
  Company Number: JP-ELI_LILLY_AND_COMPANY-JP201808012957AA

PATIENT
  Age: 78 Year
  Sex: Male

DRUGS (4)
  1. IRINOTECAN [Concomitant]
     Active Substance: IRINOTECAN
     Indication: RECTAL CANCER RECURRENT
  2. LEVOFOLINATE CALCIUM [Concomitant]
     Active Substance: LEVOLEUCOVORIN CALCIUM
     Indication: RECTAL CANCER RECURRENT
  3. FLUOROURACIL. [Concomitant]
     Active Substance: FLUOROURACIL
     Indication: RECTAL CANCER RECURRENT
  4. CYRAMZA [Suspect]
     Active Substance: RAMUCIRUMAB
     Indication: RECTAL CANCER RECURRENT
     Route: 041

REACTIONS (1)
  - Urethral haemorrhage [Unknown]
